FAERS Safety Report 9762900 (Version 2)
Quarter: 2014Q1

REPORT INFORMATION
  Report Type: Spontaneous
  Country: BR (occurrence: BR)
  Receive Date: 20131216
  Receipt Date: 20140117
  Transmission Date: 20141002
  Serious: Yes (Other)
  Sender: FDA-Public Use
  Company Number: PHHY2013BR146317

PATIENT
  Age: 58 Year
  Sex: Female
  Weight: 57 kg

DRUGS (5)
  1. SANDOSTATIN LAR [Suspect]
     Indication: PITUITARY TUMOUR
     Dosage: 30 MG, EVERY 28 DAYS
     Route: 030
  2. GABAPENTIN [Concomitant]
     Indication: DEPRESSION
     Dosage: 2 DF, DAILY
     Route: 048
  3. SERTRALINE [Concomitant]
     Indication: DEPRESSION
     Dosage: 1 DF, DAILY
     Route: 048
  4. ALDAZIDA [Concomitant]
     Indication: FLUID RETENTION
     Dosage: 2 DF, DAILY
     Route: 048
  5. FUROSEMIDE [Concomitant]
     Indication: FLUID RETENTION
     Dosage: 2 DF, DAILY
     Route: 048

REACTIONS (8)
  - Carcinoid tumour [Unknown]
  - Diabetes mellitus [Recovering/Resolving]
  - Gastrointestinal neoplasm [Recovered/Resolved]
  - Bone neoplasm [Recovered/Resolved]
  - Laryngeal neoplasm [Recovered/Resolved]
  - Neoplasm [Recovered/Resolved]
  - Injection site mass [Recovering/Resolving]
  - Pruritus [Recovering/Resolving]
